FAERS Safety Report 4876086-7 (Version None)
Quarter: 2006Q1

REPORT INFORMATION
  Report Type: 
  Country: None (occurrence: None)
  Receive Date: 20060106
  Receipt Date: 20060106
  Transmission Date: 20060701
  Serious: Yes (Other)
  Sender: FDA-Public Use
  Company Number: None

PATIENT
  Age: 80 Year
  Sex: Female
  Weight: 49.8957 kg

DRUGS (2)
  1. VERAPAMIL EXTENDED-RELEASE [Suspect]
     Indication: ARRHYTHMIA
     Dosage: 1 AND 1/2 BY MOUTH DAILY
     Route: 048
     Dates: start: 20050901, end: 20051101
  2. VERAPAMIL EXTENDED-RELEASE [Suspect]
     Indication: HYPERTENSION
     Dosage: 1 AND 1/2 BY MOUTH DAILY
     Route: 048
     Dates: start: 20050901, end: 20051101

REACTIONS (5)
  - ARRHYTHMIA [None]
  - BLOOD PRESSURE INCREASED [None]
  - CONDITION AGGRAVATED [None]
  - DYSPEPSIA [None]
  - PHARMACEUTICAL PRODUCT COMPLAINT [None]
